FAERS Safety Report 6079150-2 (Version None)
Quarter: 2009Q1

REPORT INFORMATION
  Report Type: 
  Country: None (occurrence: None)
  Receive Date: 20090216
  Receipt Date: 20090206
  Transmission Date: 20090719
  Serious: Yes (Hospitalization)
  Sender: FDA-Public Use
  Company Number: A0768553A

PATIENT
  Age: 58 Year
  Sex: Female
  Weight: 133.6 kg

DRUGS (6)
  1. AVANDIA [Suspect]
     Dosage: 4MG TWICE PER DAY
     Route: 065
     Dates: start: 20010207, end: 20070701
  2. ACTOS [Concomitant]
     Dates: start: 20040101, end: 20040101
  3. GLUCOPHAGE [Concomitant]
     Dosage: 1000MG TWICE PER DAY
     Dates: start: 20020101
  4. METFORMIN HCL [Concomitant]
     Dosage: 1000MG TWICE PER DAY
     Dates: start: 20020101
  5. INSULIN GLARGINE [Concomitant]
     Dates: start: 20050101
  6. LANTUS [Concomitant]
     Dates: start: 20050101

REACTIONS (9)
  - ARTERIOSCLEROSIS [None]
  - BLOOD CHOLESTEROL INCREASED [None]
  - CEREBROVASCULAR ACCIDENT [None]
  - CHEST PAIN [None]
  - CORONARY ARTERY DISEASE [None]
  - HYPERTENSION [None]
  - MULTIPLE FRACTURES [None]
  - MYOCARDIAL INFARCTION [None]
  - PAIN [None]
